FAERS Safety Report 6437093-6 (Version None)
Quarter: 2009Q4

REPORT INFORMATION
  Report Type: 
  Country: None (occurrence: None)
  Receive Date: 20091112
  Receipt Date: 20091030
  Transmission Date: 20100525
  Serious: Yes (Other)
  Sender: FDA-Public Use
  Company Number: PHHY2009ES47421

PATIENT
  Age: 65 Year
  Sex: Female

DRUGS (5)
  1. EXJADE [Suspect]
     Indication: LEUKAEMIA
     Dosage: 20MG/KG/DAILY
     Dates: start: 20090803, end: 20090926
  2. EXJADE [Suspect]
     Indication: SERUM FERRITIN INCREASED
  3. MERCAPTOPURINE [Concomitant]
     Dosage: 50 MG/M2, 82.5MG DAILY
  4. METHOTREXATE [Concomitant]
     Dosage: 15 MG/M2, QW
     Route: 030
  5. ATRA [Concomitant]
     Dosage: 70MG DAILY, FOR 15 DAYS EVERY 3 MONTHS

REACTIONS (10)
  - CEREBELLAR HYPOPLASIA [None]
  - DIASTOLIC DYSFUNCTION [None]
  - EASTERN COOPERATIVE ONCOLOGY GROUP PERFORMANCE STATUS WORSENED [None]
  - ECCHYMOSIS [None]
  - GENERAL PHYSICAL HEALTH DETERIORATION [None]
  - HAEMOGLOBIN DECREASED [None]
  - MALAISE [None]
  - PANCYTOPENIA [None]
  - RASH [None]
  - URINARY TRACT INFECTION [None]
